FAERS Safety Report 25083022 (Version 1)
Quarter: 2025Q1

REPORT INFORMATION
  Report Type: Spontaneous
  Country: GB (occurrence: GB)
  Receive Date: 20250317
  Receipt Date: 20250317
  Transmission Date: 20250408
  Serious: No
  Sender: ALKEM
  Company Number: None

PATIENT
  Age: 43 Year
  Sex: Female

DRUGS (3)
  1. VARENICLINE [Suspect]
     Active Substance: VARENICLINE
     Indication: Adverse drug reaction
     Dosage: 1 MILLIGRAM, BID (BD)
     Route: 065
  2. VARENICLINE [Suspect]
     Active Substance: VARENICLINE
     Indication: Ex-tobacco user
     Dosage: 0.5 MILLIGRAM, BID
     Route: 065
  3. VARENICLINE [Suspect]
     Active Substance: VARENICLINE
     Route: 065
     Dates: start: 20250103

REACTIONS (3)
  - Myopia [Not Recovered/Not Resolved]
  - Eye pain [Not Recovered/Not Resolved]
  - Vision blurred [Not Recovered/Not Resolved]

NARRATIVE: CASE EVENT DATE: 20250110
